FAERS Safety Report 6425598-3 (Version None)
Quarter: 2009Q4

REPORT INFORMATION
  Report Type: 
  Country: None (occurrence: None)
  Receive Date: 20091103
  Receipt Date: 20090921
  Transmission Date: 20100525
  Serious: Yes (Other)
  Sender: FDA-Public Use
  Company Number: GB-WYE-G04237709

PATIENT
  Sex: Male

DRUGS (1)
  1. EFFEXOR [Suspect]
     Indication: DEPRESSION
     Route: 048
     Dates: end: 20051001

REACTIONS (1)
  - SUPRAVENTRICULAR EXTRASYSTOLES [None]
